FAERS Safety Report 6795411-3 (Version None)
Quarter: 2010Q2

REPORT INFORMATION
  Report Type: 
  Country: None (occurrence: None)
  Receive Date: 20100624
  Receipt Date: 20100624
  Transmission Date: 20101027
  Serious: No
  Sender: FDA-Public Use
  Company Number: None

PATIENT
  Age: 65 Year
  Sex: Male
  Weight: 106.5953 kg

DRUGS (1)
  1. ASTEPRO [Suspect]
     Dosage: 1 SPRAY EA NOSTRIL
     Route: 045

REACTIONS (1)
  - ABDOMINAL DISCOMFORT [None]
